FAERS Safety Report 6045630-9 (Version None)
Quarter: 2009Q1

REPORT INFORMATION
  Report Type: 
  Country: None (occurrence: None)
  Receive Date: 20090121
  Receipt Date: 20090115
  Transmission Date: 20090719
  Serious: Yes (Other)
  Sender: FDA-Public Use
  Company Number: CA-ASTRAZENECA-2009UW01516

PATIENT
  Age: 65 Year
  Sex: Male
  Weight: 69.4 kg

DRUGS (9)
  1. CRESTOR [Suspect]
     Route: 048
  2. CRESTOR [Suspect]
     Route: 048
  3. LIPITOR [Suspect]
     Route: 065
  4. ALTACE [Concomitant]
  5. ASPIRIN [Concomitant]
  6. CHOLESTEROL [Concomitant]
  7. KRILL OIL [Concomitant]
  8. LOPRESSOR [Concomitant]
  9. PLAVIX [Concomitant]

REACTIONS (7)
  - GAIT DISTURBANCE [None]
  - MOBILITY DECREASED [None]
  - MUSCULOSKELETAL PAIN [None]
  - MUSCULOSKELETAL STIFFNESS [None]
  - MYALGIA [None]
  - PAIN IN EXTREMITY [None]
  - QUALITY OF LIFE DECREASED [None]
